FAERS Safety Report 5474069-X (Version None)
Quarter: 2007Q4

REPORT INFORMATION
  Report Type: 
  Country: None (occurrence: None)
  Receive Date: 20071002
  Receipt Date: 20070920
  Transmission Date: 20080405
  Serious: Yes (Other)
  Sender: FDA-Public Use
  Company Number: PHBS2007BR15859

PATIENT
  Age: 50 Year
  Sex: Male
  Weight: 103 kg

DRUGS (1)
  1. DICLOFENAC POTASSIUM [Suspect]
     Dosage: 1 TABLET, Q8H
     Route: 048

REACTIONS (2)
  - ARTHRITIS [None]
  - DIABETES MELLITUS [None]
